FAERS Safety Report 6905395-2 (Version None)
Quarter: 2010Q3

REPORT INFORMATION
  Report Type: 
  Country: None (occurrence: None)
  Receive Date: 20100802
  Receipt Date: 20100722
  Transmission Date: 20110219
  Serious: Yes (Hospitalization)
  Sender: FDA-Public Use
  Company Number: 2010US002670

PATIENT
  Age: 84 Year
  Sex: Male

DRUGS (9)
  1. VESICARE [Suspect]
     Indication: BLADDER DISORDER
     Dosage: 5 MG, QHS, ORAL
     Route: 048
     Dates: start: 20100702
  2. MORPHINE [Concomitant]
  3. TAMSULOSIN HCL [Concomitant]
  4. BETA BLOCKING AGENTS [Concomitant]
  5. POTASSIUM (POTASSIUM) [Concomitant]
  6. ASPIRIN [Concomitant]
  7. ANTIHYPERTENSIVES AND DIURETICS IN COMBINATION [Concomitant]
  8. CELEXA [Concomitant]
  9. OXYGEN (OXYGEN) [Concomitant]

REACTIONS (7)
  - CHEST PAIN [None]
  - DISORIENTATION [None]
  - DIZZINESS [None]
  - FATIGUE [None]
  - HYPERSOMNIA [None]
  - HYPOTENSION [None]
  - LISTLESS [None]
